FAERS Safety Report 4891929-9 (Version None)
Quarter: 2006Q1

REPORT INFORMATION
  Report Type: 
  Country: None (occurrence: None)
  Receive Date: 20060124
  Receipt Date: 20051122
  Transmission Date: 20060701
  Serious: Yes (Other)
  Sender: FDA-Public Use
  Company Number: PI2005-171

PATIENT
  Age: 57 Year
  Sex: Male
  Weight: 102.0593 kg

DRUGS (1)
  1. CHLORAPREP [Suspect]
     Indication: PREOPERATIVE CARE
     Dosage: FREPP

REACTIONS (3)
  - ACCIDENTAL EXPOSURE [None]
  - ERYTHEMA [None]
  - FEELING HOT [None]
